FAERS Safety Report 8004719-5 (Version None)
Quarter: 2011Q4

REPORT INFORMATION
  Report Type: 
  Country: None (occurrence: None)
  Receive Date: 20111223
  Receipt Date: 20111220
  Transmission Date: 20120403
  Serious: Yes (Life-Threatening)
  Sender: FDA-Public Use
  Company Number: DK-COVIDIEN/TYCO HEALTHCARE/MALLINCKRODT-T201102938

PATIENT
  Sex: Female

DRUGS (1)
  1. OPTIRAY 160 [Suspect]
     Indication: COMPUTERISED TOMOGRAM
     Dosage: 75 ML, SINGLE
     Route: 042

REACTIONS (2)
  - CARDIAC ARREST [None]
  - RASH [None]
